FAERS Safety Report 19715938 (Version 1)
Quarter: 2021Q3

REPORT INFORMATION
  Report Type: Spontaneous
  Country: US (occurrence: US)
  Receive Date: 20210818
  Receipt Date: 20210818
  Transmission Date: 20211014
  Serious: Yes (Other)
  Sender: FDA-Public Use
  Company Number: US-BIOHAVEN PHARMACEUTICALS-2021BHV00974

PATIENT

DRUGS (3)
  1. EMGALITY [Suspect]
     Active Substance: GALCANEZUMAB-GNLM
     Dosage: UNK
  2. NURTEC ODT [Suspect]
     Active Substance: RIMEGEPANT SULFATE
     Indication: PROPHYLAXIS
     Dosage: UNK UNK, AS NEEDED ^RESCUE^
  3. NURTEC ODT [Suspect]
     Active Substance: RIMEGEPANT SULFATE
     Indication: ILL-DEFINED DISORDER
     Dosage: UNK UNK, EVERY 48 HOURS ^PREVENTATIVE^

REACTIONS (3)
  - Rash [Unknown]
  - Systemic lupus erythematosus [Unknown]
  - Abdominal pain [Unknown]
